FAERS Safety Report 4803095-6 (Version None)
Quarter: 2005Q4

REPORT INFORMATION
  Report Type: 
  Country: None (occurrence: None)
  Receive Date: 20051017
  Receipt Date: 20051017
  Transmission Date: 20060501
  Serious: Yes (Other)
  Sender: FDA-Public Use
  Company Number: None

PATIENT
  Age: 50 Year
  Sex: Male

DRUGS (1)
  1. LIPITOR [Suspect]
     Indication: BLOOD CHOLESTEROL INCREASED
     Dosage: 20MG    BEDTIME   PO
     Route: 048
     Dates: start: 20050114, end: 20050810

REACTIONS (1)
  - BLOOD CREATINE PHOSPHOKINASE INCREASED [None]
